FAERS Safety Report 5505230-3 (Version None)
Quarter: 2007Q4

REPORT INFORMATION
  Report Type: 
  Country: None (occurrence: None)
  Receive Date: 20071102
  Receipt Date: 20070209
  Transmission Date: 20080405
  Serious: No
  Sender: FDA-Public Use
  Company Number: US-KINGPHARMUSA00001-K200700165

PATIENT

DRUGS (3)
  1. MENEST [Suspect]
     Indication: HYSTERECTOMY
     Dosage: .3 MG, SINGLE
     Route: 048
     Dates: start: 20070206, end: 20070206
  2. VITAMIN E                          /00110501/ [Concomitant]
     Indication: VITAMIN SUPPLEMENTATION
     Dosage: 200 UNK, QD
     Route: 048
  3. MULTIVITAMIN   /00831701/ [Concomitant]
     Indication: VITAMIN SUPPLEMENTATION
     Dosage: UNK, QD
     Route: 048

REACTIONS (2)
  - HEADACHE [None]
  - HEART RATE INCREASED [None]
